FAERS Safety Report 8931402 (Version 1)
Quarter: 2012Q4

REPORT INFORMATION
  Report Type: 
  Country: JP (occurrence: JP)
  Receive Date: 20121128
  Receipt Date: 20121128
  Transmission Date: 20130627
  Serious: Yes (Other)
  Sender: FDA-Public Use
  Company Number: JP-PFIZER INC-2012296817

PATIENT
  Sex: Female

DRUGS (1)
  1. LYRICA [Suspect]
     Indication: LOW BACK PAIN
     Dosage: 1 DF, 2x/day in the morning and evening

REACTIONS (8)
  - Oral candidiasis [Not Recovered/Not Resolved]
  - Cheilitis [Not Recovered/Not Resolved]
  - Stomatitis [Unknown]
  - Oral pain [Unknown]
  - Swollen tongue [Unknown]
  - Tongue disorder [Unknown]
  - Glossodynia [Unknown]
  - Drug ineffective [Unknown]
